FAERS Safety Report 18153217 (Version 1)
Quarter: 2020Q3

REPORT INFORMATION
  Report Type: Spontaneous
  Country: US (occurrence: US)
  Receive Date: 20200815
  Receipt Date: 20200815
  Transmission Date: 20201103
  Serious: No
  Sender: FDA-Public Use
  Company Number: US-SA-2020SA208235

PATIENT

DRUGS (2)
  1. ARAVA [Suspect]
     Active Substance: LEFLUNOMIDE
     Indication: RHEUMATOID ARTHRITIS
     Dosage: 10 MG, QD, FOR 8 WEEKS
     Route: 048
     Dates: start: 20200515
  2. ARAVA [Suspect]
     Active Substance: LEFLUNOMIDE
     Dosage: 20 MG, QD
     Route: 048
     Dates: end: 20200806

REACTIONS (3)
  - Nausea [Not Recovered/Not Resolved]
  - Vomiting [Not Recovered/Not Resolved]
  - Abdominal pain upper [Recovering/Resolving]
